FAERS Safety Report 6740387-8 (Version None)
Quarter: 2010Q2

REPORT INFORMATION
  Report Type: 
  Country: None (occurrence: None)
  Receive Date: 20100525
  Receipt Date: 20100514
  Transmission Date: 20101027
  Serious: Yes (Hospitalization, Other)
  Sender: FDA-Public Use
  Company Number: NL-ELI_LILLY_AND_COMPANY-NL201005004105

PATIENT
  Sex: Male

DRUGS (1)
  1. ZYPREXA [Suspect]

REACTIONS (2)
  - BRADYCARDIA [None]
  - HYPOTENSION [None]
